FAERS Safety Report 17650862 (Version 1)
Quarter: 2020Q2

REPORT INFORMATION
  Report Type: Spontaneous
  Country: CN (occurrence: CN)
  Receive Date: 20200408
  Receipt Date: 20200408
  Transmission Date: 20200713
  Serious: Yes (Other)
  Sender: FDA-Public Use
  Company Number: NVSC2020CN094803

PATIENT
  Sex: Female
  Weight: 70 kg

DRUGS (1)
  1. COSENTYX [Suspect]
     Active Substance: SECUKINUMAB
     Indication: PRODUCT USED FOR UNKNOWN INDICATION
     Dosage: UNK
     Route: 065
     Dates: start: 201908

REACTIONS (3)
  - Rash macular [Recovered/Resolved with Sequelae]
  - Acne [Recovered/Resolved with Sequelae]
  - Rheumatic disorder [Recovered/Resolved with Sequelae]

NARRATIVE: CASE EVENT DATE: 201908
